FAERS Safety Report 5224718-6 (Version None)
Quarter: 2007Q1

REPORT INFORMATION
  Report Type: 
  Country: None (occurrence: None)
  Receive Date: 20070131
  Receipt Date: 20070123
  Transmission Date: 20070707
  Serious: Yes (Hospitalization)
  Sender: FDA-Public Use
  Company Number: FRWYE290223JAN07

PATIENT
  Age: 8 Year
  Sex: Female
  Weight: 29 kg

DRUGS (6)
  1. ADVIL [Suspect]
     Indication: HEADACHE
     Route: 048
     Dates: start: 20061130, end: 20061204
  2. ADVIL [Suspect]
     Indication: PYREXIA
  3. CODEINE [Suspect]
     Indication: HEADACHE
     Route: 048
     Dates: start: 20061130, end: 20061203
  4. CODEINE [Suspect]
     Indication: PYREXIA
  5. DOLIPRANE [Suspect]
     Indication: HEADACHE
     Route: 048
     Dates: start: 20061130, end: 20061204
  6. DOLIPRANE [Suspect]
     Indication: PYREXIA

REACTIONS (5)
  - ABDOMINAL PAIN [None]
  - ALANINE AMINOTRANSFERASE INCREASED [None]
  - ASPARTATE AMINOTRANSFERASE INCREASED [None]
  - GAMMA-GLUTAMYLTRANSFERASE INCREASED [None]
  - VOMITING [None]
